FAERS Safety Report 15550932 (Version 1)
Quarter: 2018Q4

REPORT INFORMATION
  Report Type: Spontaneous
  Country: US (occurrence: US)
  Receive Date: 20181025
  Receipt Date: 20181025
  Transmission Date: 20190205
  Serious: No
  Sender: FDA-Public Use
  Company Number: US-BAYER-2018-198176

PATIENT

DRUGS (1)
  1. ALEVE BACK AND MUSCLE PAIN [Suspect]
     Active Substance: NAPROXEN SODIUM
     Route: 065

REACTIONS (1)
  - Incorrect dosage administered [Unknown]
